FAERS Safety Report 6630865-4 (Version None)
Quarter: 2010Q1

REPORT INFORMATION
  Report Type: 
  Country: None (occurrence: None)
  Receive Date: 20100311
  Receipt Date: 20100303
  Transmission Date: 20100710
  Serious: Yes (Other)
  Sender: FDA-Public Use
  Company Number: DO-BAXTER-2010BH006240

PATIENT
  Age: 3 Year
  Sex: Male
  Weight: 16 kg

DRUGS (2)
  1. DIANEAL [Suspect]
     Indication: PERITONEAL DIALYSIS
     Route: 033
  2. DIANEAL [Suspect]
     Route: 033

REACTIONS (5)
  - ABDOMINAL DISTENSION [None]
  - GENERALISED OEDEMA [None]
  - PALLOR [None]
  - PULMONARY OEDEMA [None]
  - RESPIRATORY DISTRESS [None]
